FAERS Safety Report 5503918-1 (Version None)
Quarter: 2007Q4

REPORT INFORMATION
  Report Type: 
  Country: None (occurrence: None)
  Receive Date: 20071030
  Receipt Date: 20071030
  Transmission Date: 20080405
  Serious: Yes (Hospitalization)
  Sender: FDA-Public Use
  Company Number: None

PATIENT
  Sex: Male
  Weight: 76 kg

DRUGS (6)
  1. CYCLOPHOSPHAMIDE [Suspect]
     Dosage: 1965 MG
  2. DOXORUBICIN HYDROCHLORIDE [Suspect]
     Dosage: 104 MG
  3. ETOPOSIDE [Suspect]
     Dosage: 520 MG
  4. PREDNISONE TAB [Suspect]
     Dosage: 990 MG
  5. RITUXIMAB (MOAB C2B8 ANTI CD20, CHIMERIC) [Suspect]
     Dosage: 680 MG
  6. VINCRISTINE SULFATE [Suspect]
     Dosage: 2.8 MG

REACTIONS (2)
  - CULTURE URINE POSITIVE [None]
  - KLEBSIELLA INFECTION [None]
